FAERS Safety Report 22335007 (Version 8)
Quarter: 2023Q2

REPORT INFORMATION
  Report Type: Spontaneous
  Country: US (occurrence: US)
  Receive Date: 20230518
  Receipt Date: 20230627
  Transmission Date: 20230722
  Serious: Yes (Death, Life-Threatening, Hospitalization, Other)
  Sender: FDA-Public Use
  Company Number: US-UNITED THERAPEUTICS-UNT-2023-012814

PATIENT
  Sex: Female
  Weight: 50.794 kg

DRUGS (10)
  1. REMODULIN [Suspect]
     Active Substance: TREPROSTINIL
     Indication: Pulmonary arterial hypertension
     Dosage: 0.040 ?G/KG, CONTINUING (PHARMACY FILLED WITH 2.2 ML PER CASSETTE; RATE 22 MCL PER HOUR)
     Route: 058
  2. REMODULIN [Suspect]
     Active Substance: TREPROSTINIL
     Dosage: UNK, CONTINUING
     Route: 058
     Dates: start: 20230425
  3. REMODULIN [Suspect]
     Active Substance: TREPROSTINIL
     Indication: Pulmonary arterial hypertension
     Dosage: UNK, CONTINUING
     Route: 058
     Dates: start: 20230506
  4. TYVASO DPI [Suspect]
     Active Substance: TREPROSTINIL
     Indication: Pulmonary arterial hypertension
     Dosage: 64 ?G, QID
  5. TYVASO DPI [Suspect]
     Active Substance: TREPROSTINIL
     Dosage: UNK, CONTINUING
     Dates: start: 20230116, end: 2023
  6. TYVASO DPI [Suspect]
     Active Substance: TREPROSTINIL
     Indication: Pulmonary arterial hypertension
     Dosage: UNK
  7. IMODIUM [Suspect]
     Active Substance: LOPERAMIDE HYDROCHLORIDE
     Indication: Faeces discoloured
     Dosage: UNK
     Route: 065
  8. XARELTO [Concomitant]
     Active Substance: RIVAROXABAN
     Indication: Product used for unknown indication
     Dosage: UNK
     Route: 065
  9. SILDENAFIL [Concomitant]
     Active Substance: SILDENAFIL
     Indication: Product used for unknown indication
     Dosage: UNK
     Route: 065
  10. DILTIAZEM [Concomitant]
     Active Substance: DILTIAZEM
     Indication: Product used for unknown indication
     Dosage: UNK
     Route: 065

REACTIONS (27)
  - Death [Fatal]
  - Aspiration [Unknown]
  - Procedural vomiting [Unknown]
  - Procedural complication [Unknown]
  - Blood pressure fluctuation [Unknown]
  - Respiratory failure [Unknown]
  - Small intestinal haemorrhage [Unknown]
  - Taste disorder [Unknown]
  - Decreased appetite [Unknown]
  - Infusion site pain [Recovering/Resolving]
  - Erythema [Unknown]
  - Infusion site erythema [Recovering/Resolving]
  - Anxiety [Unknown]
  - Faeces discoloured [Unknown]
  - Listless [Unknown]
  - Fatigue [Unknown]
  - Blood pressure decreased [Unknown]
  - Dyspnoea [Unknown]
  - Device power source issue [Unknown]
  - Device failure [Unknown]
  - Device failure [Unknown]
  - Device failure [Unknown]
  - Device failure [Unknown]
  - Device failure [Unknown]
  - Device failure [Unknown]
  - Device failure [Unknown]
  - Therapy non-responder [Unknown]

NARRATIVE: CASE EVENT DATE: 20230101
